FAERS Safety Report 20818310 (Version 1)
Quarter: 2022Q2

REPORT INFORMATION
  Report Type: Spontaneous
  Country: SK (occurrence: SK)
  Receive Date: 20220512
  Receipt Date: 20220512
  Transmission Date: 20220721
  Serious: Yes (Other)
  Sender: FDA-Public Use
  Company Number: SK-002147023-NVSC2022SK086217

PATIENT
  Age: 55 Year
  Sex: Female

DRUGS (4)
  1. LETROZOLE [Suspect]
     Active Substance: LETROZOLE
     Indication: Leiomyoma
     Dosage: 2.5 MILLIGRAM, QD
     Route: 065
     Dates: start: 202006, end: 202012
  2. LETROZOLE [Suspect]
     Active Substance: LETROZOLE
     Dosage: UNK, NO TREATMENT
  3. LETROZOLE [Suspect]
     Active Substance: LETROZOLE
     Indication: Antioestrogen therapy
     Dosage: 2.5 MILLIGRAM, QD
     Route: 065
     Dates: start: 202006, end: 202012
  4. LETROZOLE [Suspect]
     Active Substance: LETROZOLE
     Indication: Leiomyoma

REACTIONS (3)
  - Pulmonary hypertension [Not Recovered/Not Resolved]
  - Dyspnoea [Not Recovered/Not Resolved]
  - Off label use [Unknown]

NARRATIVE: CASE EVENT DATE: 20200601
